FAERS Safety Report 16066742 (Version 1)
Quarter: 2019Q1

REPORT INFORMATION
  Report Type: Spontaneous
  Country: GB (occurrence: GB)
  Receive Date: 20190313
  Receipt Date: 20190313
  Transmission Date: 20190418
  Serious: Yes (Other)
  Sender: FDA-Public Use
  Company Number: GB-PFIZER INC-2019107171

PATIENT
  Age: 84 Year
  Sex: Male

DRUGS (2)
  1. METHOTREXATE SODIUM. [Suspect]
     Active Substance: METHOTREXATE SODIUM
     Indication: RHEUMATOID ARTHRITIS
     Dosage: 15 MG, WEEKLY
     Route: 065
  2. CALCIUM [Concomitant]
     Active Substance: CALCIUM
     Dosage: 400 MG, DAILY

REACTIONS (2)
  - Bone disorder [Recovered/Resolved]
  - Stress fracture [Recovered/Resolved]
